FAERS Safety Report 9009680 (Version 4)
Quarter: 2013Q2

REPORT INFORMATION
  Report Type: Report from Study
  Country: US (occurrence: US)
  Receive Date: 20130110
  Receipt Date: 20130503
  Transmission Date: 20140414
  Serious: Yes (Hospitalization, Other)
  Sender: FDA-Public Use
  Company Number: US-BAYER-2013-000841

PATIENT
  Age: 55 Year
  Sex: Male

DRUGS (3)
  1. NEXAVAR [Suspect]
     Indication: HEPATIC CANCER
     Dosage: 400 MG, BID
     Route: 048
     Dates: start: 20121220
  2. NEXAVAR [Suspect]
     Indication: HEPATIC CANCER
     Dosage: 400 MG, BID
     Route: 048
     Dates: start: 20121220
  3. NEXAVAR [Suspect]
     Indication: HEPATIC CANCER
     Dosage: 400 MG, BID
     Route: 048
     Dates: start: 20121220

REACTIONS (10)
  - Skin exfoliation [None]
  - Hospitalisation [None]
  - Pain in extremity [Unknown]
  - Blister [None]
  - Joint swelling [None]
  - Arthralgia [None]
  - Local swelling [None]
  - Skin exfoliation [None]
  - Muscle spasms [None]
  - Rash [None]
